FAERS Safety Report 25996368 (Version 3)
Quarter: 2025Q4

REPORT INFORMATION
  Report Type: Report from Study
  Country: US (occurrence: US)
  Receive Date: 20251104
  Receipt Date: 20251216
  Transmission Date: 20260117
  Serious: Yes (Hospitalization, Other)
  Sender: ALEXION PHARMACEUTICALS
  Company Number: US-AstraZeneca-CH-00982609A

PATIENT
  Sex: Male

DRUGS (2)
  1. RAVULIZUMAB [Suspect]
     Active Substance: RAVULIZUMAB
     Dosage: UNK
     Route: 065
  2. COVID-19 VACCINE NOS [Suspect]
     Active Substance: COVID-19 VACCINE
     Indication: COVID-19 immunisation
     Dosage: UNK
     Route: 065

REACTIONS (6)
  - Anaphylactic reaction [Unknown]
  - Nephrolithiasis [Recovered/Resolved]
  - Pyrexia [Unknown]
  - Dysphagia [Unknown]
  - Peripheral swelling [Unknown]
  - Memory impairment [Unknown]
